FAERS Safety Report 15451761 (Version 1)
Quarter: 2018Q4

REPORT INFORMATION
  Report Type: Spontaneous
  Country: GB (occurrence: HR)
  Receive Date: 20181001
  Receipt Date: 20181001
  Transmission Date: 20190204
  Serious: Yes (Other)
  Sender: FDA-Public Use
  Company Number: HR-FRESENIUS KABI-FK201810139

PATIENT
  Age: 62 Year
  Sex: Male
  Weight: 78 kg

DRUGS (6)
  1. OXALIPLATIN 5MG/ML POWDER FOR SOLUTION FOR INFUSION [Suspect]
     Active Substance: OXALIPLATIN
     Indication: RECTOSIGMOID CANCER
     Route: 042
     Dates: start: 20180823, end: 20180823
  2. SYNOPEN [Concomitant]
     Active Substance: CHLOROPYRAMINE HYDROCHLORIDE
     Indication: RECTOSIGMOID CANCER
     Route: 042
     Dates: start: 20180823, end: 20180823
  3. DEXAMETHASONE. [Concomitant]
     Active Substance: DEXAMETHASONE
     Indication: RECTOSIGMOID CANCER
     Route: 042
     Dates: start: 20180823, end: 20180823
  4. BLOCULCER [Concomitant]
     Indication: RECTOSIGMOID CANCER
     Route: 042
     Dates: start: 20180823, end: 20180823
  5. ONDANSETRON [Concomitant]
     Active Substance: ONDANSETRON
     Indication: RECTOSIGMOID CANCER
     Route: 042
     Dates: start: 20180823, end: 20180823
  6. CAPECITABINE. [Concomitant]
     Active Substance: CAPECITABINE
     Indication: RECTOSIGMOID CANCER
     Route: 048
     Dates: start: 20180823

REACTIONS (3)
  - Idiosyncratic drug reaction [Unknown]
  - Tongue oedema [Unknown]
  - Pain [Unknown]

NARRATIVE: CASE EVENT DATE: 20180823
